FAERS Safety Report 20502824 (Version 1)
Quarter: 2022Q1

REPORT INFORMATION
  Report Type: Spontaneous
  Country: US (occurrence: None)
  Receive Date: 20220222
  Receipt Date: 20220222
  Transmission Date: 20220423
  Serious: Yes (Death, Hospitalization)
  Sender: FDA-Public Use
  Company Number: None

PATIENT
  Age: 60 Year
  Sex: Female
  Weight: 77.9 kg

DRUGS (3)
  1. NIVOLUMAB [Suspect]
     Active Substance: NIVOLUMAB
     Indication: Metastases to central nervous system
     Dates: end: 20211109
  2. BINIMETINIB [Suspect]
     Active Substance: BINIMETINIB
     Indication: Metastases to central nervous system
     Dates: end: 20220118
  3. ENCORAFENIB [Suspect]
     Active Substance: ENCORAFENIB
     Indication: Metastases to central nervous system
     Dates: end: 20220106

REACTIONS (16)
  - Encephalopathy [None]
  - Hypotension [None]
  - Sepsis [None]
  - Atypical pneumonia [None]
  - Pulmonary oedema [None]
  - Rash maculo-papular [None]
  - Skin exfoliation [None]
  - Deep vein thrombosis [None]
  - Urinary tract infection [None]
  - Muscular weakness [None]
  - Hypoxia [None]
  - Alanine aminotransferase increased [None]
  - Aspartate aminotransferase increased [None]
  - Dyspnoea [None]
  - Cough [None]
  - Pleural effusion [None]

NARRATIVE: CASE EVENT DATE: 20220131
